FAERS Safety Report 23098985 (Version 1)
Quarter: 2023Q4

REPORT INFORMATION
  Report Type: Spontaneous
  Country: AT (occurrence: AT)
  Receive Date: 20231024
  Receipt Date: 20231024
  Transmission Date: 20240110
  Serious: Yes (Death, Other)
  Sender: FDA-Public Use
  Company Number: AT-009507513-2307AUT011735

PATIENT
  Age: 72 Year
  Sex: Female

DRUGS (5)
  1. POSACONAZOLE [Suspect]
     Active Substance: POSACONAZOLE
     Indication: Prophylaxis
     Dosage: TABLET NOT CONFIRMED
     Route: 048
     Dates: start: 202207, end: 2022
  2. AZACITIDINE [Suspect]
     Active Substance: AZACITIDINE
     Dosage: UNK
     Dates: start: 20220712
  3. VENETOCLAX [Suspect]
     Active Substance: VENETOCLAX
     Dosage: 70 MILLIGRAM
     Dates: start: 20220712, end: 20220802
  4. VENETOCLAX [Suspect]
     Active Substance: VENETOCLAX
     Dosage: 2ND CYCLE: UNKNOWN DOSAGE
     Dates: start: 2022, end: 2022
  5. VENETOCLAX [Suspect]
     Active Substance: VENETOCLAX
     Dosage: INCREASED TO 400 MG FROM THE 3RD CYCLE
     Dates: start: 2022

REACTIONS (2)
  - Neutropenia [Recovered/Resolved]
  - Death [Fatal]

NARRATIVE: CASE EVENT DATE: 20220802
